FAERS Safety Report 11981875 (Version 1)
Quarter: 2016Q1

REPORT INFORMATION
  Report Type: Spontaneous
  Country: BR (occurrence: BR)
  Receive Date: 20160201
  Receipt Date: 20160201
  Transmission Date: 20160526
  Serious: Yes (Hospitalization, Other)
  Sender: FDA-Public Use
  Company Number: BR-ROCHE-1696979

PATIENT
  Age: 65 Year
  Sex: Female
  Weight: 48 kg

DRUGS (5)
  1. SERTRALINE [Suspect]
     Active Substance: SERTRALINE HYDROCHLORIDE
     Indication: DEPRESSION
     Route: 065
  2. SIMETHICONE (DIMETHICONE) [Concomitant]
     Active Substance: DIMETHICONE
     Indication: ABDOMINAL DISTENSION
  3. RIVOTRIL [Suspect]
     Active Substance: CLONAZEPAM
     Indication: BALANCE DISORDER
     Dosage: AS REQUIRED, SUBLINGUAL TABLETS
     Route: 060
     Dates: start: 1996
  4. RIVOTRIL [Suspect]
     Active Substance: CLONAZEPAM
     Indication: TINNITUS
     Dosage: SUBLINGUAL TABLETS
     Route: 060
     Dates: start: 1996
  5. DEGIDRAT [Suspect]
     Active Substance: TRIMEBUTINE MALEATE
     Indication: DIARRHOEA
     Route: 065

REACTIONS (18)
  - Depression [Not Recovered/Not Resolved]
  - Dyskinesia [Unknown]
  - Osteoarthritis [Not Recovered/Not Resolved]
  - Muscle atrophy [Unknown]
  - Bipolar disorder [Not Recovered/Not Resolved]
  - Bullous lung disease [Not Recovered/Not Resolved]
  - Acute stress disorder [Unknown]
  - Restless legs syndrome [Recovered/Resolved]
  - Asthenia [Unknown]
  - Lactose intolerance [Not Recovered/Not Resolved]
  - Erythema [Unknown]
  - Photosensitivity reaction [Not Recovered/Not Resolved]
  - Drug dependence [Unknown]
  - Viral infection [Unknown]
  - Mental impairment [Unknown]
  - Immunodeficiency [Unknown]
  - Syncope [Unknown]
  - Weight decreased [Unknown]

NARRATIVE: CASE EVENT DATE: 2007
